FAERS Safety Report 14840660 (Version 1)
Quarter: 2018Q2

REPORT INFORMATION
  Report Type: Report from Study
  Country: US (occurrence: US)
  Receive Date: 20180503
  Receipt Date: 20180503
  Transmission Date: 20180711
  Serious: No
  Sender: FDA-Public Use
  Company Number: PHEH2018US017040

PATIENT
  Age: 65 Year
  Sex: Female

DRUGS (1)
  1. GILENYA [Suspect]
     Active Substance: FINGOLIMOD HYDROCHLORIDE
     Indication: MULTIPLE SCLEROSIS
     Dosage: 0.5 MG, QD (STARTED ABOUT 9 MONTHS AGO)
     Route: 048

REACTIONS (3)
  - Headache [Unknown]
  - Vertigo [Unknown]
  - Fatigue [Unknown]

NARRATIVE: CASE EVENT DATE: 20180416
